FAERS Safety Report 7290854-6 (Version None)
Quarter: 2011Q1

REPORT INFORMATION
  Report Type: 
  Country: None (occurrence: None)
  Receive Date: 20110202
  Receipt Date: 20110118
  Transmission Date: 20110831
  Serious: Yes (Other)
  Sender: FDA-Public Use
  Company Number: B0696720A

PATIENT
  Age: 44 Year

DRUGS (1)
  1. PROPRANOLOL HYDROCHLORIDE [Suspect]
     Indication: HYPERTENSION
     Dosage: ORAL
     Route: 048

REACTIONS (4)
  - TONSILLAR HYPERTROPHY [None]
  - SLEEP APNOEA SYNDROME [None]
  - AGGRESSION [None]
  - RAPID EYE MOVEMENTS SLEEP ABNORMAL [None]
